FAERS Safety Report 8318708-4 (Version None)
Quarter: 2012Q2

REPORT INFORMATION
  Report Type: 
  Country: None (occurrence: None)
  Receive Date: 20120427
  Receipt Date: 20120417
  Transmission Date: 20120825
  Serious: Yes (Life-Threatening)
  Sender: FDA-Public Use
  Company Number: CA-FRI-1000030087

PATIENT
  Sex: Female

DRUGS (5)
  1. ESCITALOPRAM [Suspect]
     Dosage: 10 MG
     Route: 048
  2. ESCITALOPRAM [Suspect]
     Indication: DEPRESSION
     Dosage: 20 MG
     Route: 048
     Dates: start: 20100301
  3. ESCITALOPRAM [Suspect]
     Dosage: 5 MG
     Route: 048
  4. ESCITALOPRAM [Suspect]
     Dosage: 15 MG
     Route: 048
  5. ESCITALOPRAM [Suspect]
     Dosage: 10 MG
     Route: 048
     Dates: start: 20120401

REACTIONS (3)
  - DRUG EFFECT DECREASED [None]
  - ABNORMAL BEHAVIOUR [None]
  - SOMNAMBULISM [None]
